FAERS Safety Report 7935873-9 (Version None)
Quarter: 2011Q4

REPORT INFORMATION
  Report Type: 
  Country: None (occurrence: None)
  Receive Date: 20111123
  Receipt Date: 20111118
  Transmission Date: 20120403
  Serious: Yes (Hospitalization)
  Sender: FDA-Public Use
  Company Number: US-TEVA-309883USA

PATIENT
  Age: 40 Year
  Sex: Female

DRUGS (7)
  1. COPAXONE [Suspect]
     Indication: MULTIPLE SCLEROSIS
     Route: 058
     Dates: start: 20111104, end: 20111118
  2. BACLOFEN [Concomitant]
  3. VENLAFAXINE [Concomitant]
  4. LAMOTRIGINE [Concomitant]
  5. SUMATRIPTAN [Concomitant]
  6. VICODIN [Concomitant]
  7. PROCHLORPERAZINE EDISYLATE [Concomitant]

REACTIONS (4)
  - CHILLS [None]
  - CHEST PAIN [None]
  - TREMOR [None]
  - PYREXIA [None]
